FAERS Safety Report 14729432 (Version 2)
Quarter: 2018Q2

REPORT INFORMATION
  Report Type: Report from Study
  Country: US (occurrence: US)
  Receive Date: 20180406
  Receipt Date: 20180416
  Transmission Date: 20180711
  Serious: Yes (Hospitalization)
  Sender: FDA-Public Use
  Company Number: US-ACTELION-A-US2018-165213

PATIENT
  Age: 75 Year
  Sex: Female
  Weight: 57.14 kg

DRUGS (8)
  1. UPTRAVI [Suspect]
     Active Substance: SELEXIPAG
     Indication: PULMONARY ARTERIAL HYPERTENSION
     Dosage: 400 MCG, BID
     Route: 048
  2. OPSUMIT [Suspect]
     Active Substance: MACITENTAN
     Indication: PULMONARY ARTERIAL HYPERTENSION
     Dosage: 10 MG, UNK
     Route: 048
  3. SILDENAFIL. [Concomitant]
     Active Substance: SILDENAFIL
     Indication: PULMONARY ARTERIAL HYPERTENSION
  4. UPTRAVI [Suspect]
     Active Substance: SELEXIPAG
     Dosage: 600 MCG, BID
     Route: 048
     Dates: start: 201802
  5. ELIQUIS [Concomitant]
     Active Substance: APIXABAN
  6. UPTRAVI [Suspect]
     Active Substance: SELEXIPAG
     Dosage: 1200 MCG, BID
     Route: 048
  7. UPTRAVI [Suspect]
     Active Substance: SELEXIPAG
     Dosage: 200 MCG, BID
     Route: 048
  8. UPTRAVI [Suspect]
     Active Substance: SELEXIPAG
     Dosage: 1800 MCG, 1000MCG QAM, 800MCG QPM
     Route: 048

REACTIONS (12)
  - Diarrhoea [Unknown]
  - Disease progression [Unknown]
  - Renal impairment [Unknown]
  - Fluid retention [Unknown]
  - Fatigue [Recovered/Resolved]
  - Pulmonary oedema [Recovering/Resolving]
  - Vomiting [Unknown]
  - Device infusion issue [Unknown]
  - Cardiac disorder [Recovering/Resolving]
  - Headache [Unknown]
  - Oedema peripheral [Unknown]
  - Asthenia [Recovered/Resolved]
